FAERS Safety Report 24724929 (Version 1)
Quarter: 2024Q4

REPORT INFORMATION
  Report Type: Spontaneous
  Country: CN (occurrence: CN)
  Receive Date: 20241212
  Receipt Date: 20241212
  Transmission Date: 20250115
  Serious: Yes (Hospitalization)
  Sender: NOVARTIS
  Company Number: CN-002147023-NVSC2024CN233124

PATIENT
  Age: 85 Year
  Sex: Female

DRUGS (1)
  1. SACUBITRIL\VALSARTAN [Suspect]
     Active Substance: SACUBITRIL\VALSARTAN
     Indication: Cerebrovascular disorder
     Dosage: 100.000 MG, QD
     Route: 048
     Dates: start: 20241028, end: 20241104

REACTIONS (10)
  - Blood creatinine increased [Not Recovered/Not Resolved]
  - Chest discomfort [Unknown]
  - Palpitations [Unknown]
  - Cardiac failure chronic [Unknown]
  - Cardiac dysfunction [Unknown]
  - Hypertension [Unknown]
  - Cerebral infarction [Unknown]
  - Peripheral artery thrombosis [Unknown]
  - Post procedural complication [Unknown]
  - Off label use [Unknown]

NARRATIVE: CASE EVENT DATE: 20241028
